FAERS Safety Report 8111342-0 (Version None)
Quarter: 2012Q1

REPORT INFORMATION
  Report Type: 
  Country: None (occurrence: None)
  Receive Date: 20120203
  Receipt Date: 20110914
  Transmission Date: 20120608
  Serious: No
  Sender: FDA-Public Use
  Company Number: US-GLAXOSMITHKLINE-A0944618A

PATIENT
  Age: 40 Year
  Sex: Female

DRUGS (7)
  1. ZYRTEC [Concomitant]
  2. LAMOTRIGINE [Suspect]
     Indication: BIPOLAR DISORDER
     Dosage: 100MG TWICE PER DAY
     Route: 048
     Dates: start: 20101101, end: 20110801
  3. IBUPROFEN (ADVIL) [Concomitant]
  4. BENADRYL [Concomitant]
  5. XANAX [Concomitant]
  6. NAPROXEN (ALEVE) [Concomitant]
  7. EXCEDRIN (MIGRAINE) [Concomitant]

REACTIONS (2)
  - PRURITUS [None]
  - RASH [None]
